FAERS Safety Report 14813953 (Version 1)
Quarter: 2018Q2

REPORT INFORMATION
  Report Type: Spontaneous
  Country: PR (occurrence: PR)
  Receive Date: 20180402
  Receipt Date: 20180402
  Transmission Date: 20180711
  Serious: No
  Sender: FDA-Public Use
  Company Number: None

PATIENT
  Age: 41 Year
  Sex: Female
  Weight: 108 kg

DRUGS (1)
  1. TAZICEF [Suspect]
     Active Substance: CEFTAZIDIME
     Route: 042
     Dates: start: 20180321, end: 20180326

REACTIONS (2)
  - Urinary tract infection [None]
  - Pruritus [None]

NARRATIVE: CASE EVENT DATE: 20180326
